FAERS Safety Report 6457883-3 (Version None)
Quarter: 2009Q4

REPORT INFORMATION
  Report Type: 
  Country: None (occurrence: None)
  Receive Date: 20091125
  Receipt Date: 20091120
  Transmission Date: 20100525
  Serious: Yes (Other)
  Sender: FDA-Public Use
  Company Number: US-GENENTECH-294816

PATIENT
  Age: 41 Year
  Sex: Female

DRUGS (1)
  1. HERCEPTIN [Suspect]
     Indication: MONOCLONAL ANTIBODY UNCONJUGATED THERAPY
     Dosage: UNK

REACTIONS (2)
  - BRADYCARDIA [None]
  - VENTRICULAR HYPERTROPHY [None]
